FAERS Safety Report 18478769 (Version 1)
Quarter: 2020Q4

REPORT INFORMATION
  Report Type: Spontaneous
  Country: GB (occurrence: GB)
  Receive Date: 20201109
  Receipt Date: 20201109
  Transmission Date: 20210114
  Serious: Yes (Life-Threatening, Hospitalization, Other)
  Sender: FDA-Public Use
  Company Number: GB-TEVA-2020-GB-1845313

PATIENT
  Age: 82 Year

DRUGS (2)
  1. TINZAPARIN SODIUM [Suspect]
     Active Substance: TINZAPARIN SODIUM
     Indication: THROMBOSIS PROPHYLAXIS
     Dosage: 4500 IU
     Route: 058
  2. LINEZOLID. [Suspect]
     Active Substance: LINEZOLID
     Indication: DIABETIC FOOT INFECTION
     Dosage: 1200 MG
     Route: 048
     Dates: start: 20200907, end: 20201001

REACTIONS (1)
  - Thrombocytopenia [Not Recovered/Not Resolved]
